FAERS Safety Report 25817294 (Version 2)
Quarter: 2025Q4

REPORT INFORMATION
  Report Type: Spontaneous
  Country: US (occurrence: US)
  Receive Date: 20250918
  Receipt Date: 20251013
  Transmission Date: 20260118
  Serious: Yes (Other)
  Sender: PFIZER
  Company Number: US-PFIZER INC-202500182993

PATIENT
  Age: 75 Year
  Sex: Female
  Weight: 55.34 kg

DRUGS (21)
  1. LEVOXYL [Suspect]
     Active Substance: LEVOTHYROXINE SODIUM
     Indication: Hypothyroidism
     Dosage: 50 UG, DAILY
     Dates: start: 1985
  2. LEVOXYL [Suspect]
     Active Substance: LEVOTHYROXINE SODIUM
     Dosage: 50 UG, 1X/DAY
     Route: 048
  3. METRONIDAZOLE [Concomitant]
     Active Substance: METRONIDAZOLE
     Indication: Rosacea
     Dosage: ONE DAILY APPLICATION (LOTION)
     Route: 061
  4. OMEPRAZOLE [Concomitant]
     Active Substance: OMEPRAZOLE
     Indication: Gastrooesophageal reflux disease
     Dosage: 20 MG, 1X/DAY (TAKE ONE TABLET PER DAY)
  5. GABAPENTIN [Concomitant]
     Active Substance: GABAPENTIN
     Indication: Restless legs syndrome
     Dosage: 300 MG, 2X/DAY (300 MG 2 HRS BEFORE BEDTIME AND 300MG AT BEDTIME)
  6. GABAPENTIN [Concomitant]
     Active Substance: GABAPENTIN
     Indication: Pain in extremity
  7. TYLENOL [Concomitant]
     Active Substance: ACETAMINOPHEN
     Indication: Pelvic pain
     Dosage: 1000 MG, 1X/DAY (TAKE 2 AT BEDTIME)
  8. TYLENOL [Concomitant]
     Active Substance: ACETAMINOPHEN
     Indication: Muscle spasms
  9. ESTRADIOL [Concomitant]
     Active Substance: ESTRADIOL
     Indication: Cystitis
     Dosage: 10 UG, 2X/WEEK (INSERT 1 SUPPOSITORY 2 TIMES PER WEEK)
  10. ALLER FLO [Concomitant]
     Dosage: 50 UG, DAILY (USE 1 SPRAY IN EACH NOSTRIL DAILY)
     Route: 045
     Dates: start: 20230401
  11. BUDESONIDE [Concomitant]
     Active Substance: BUDESONIDE
     Indication: Sinusitis
     Dosage: 0.6 MG, AS NEEDED (OPEN CAPSULE AND ADD TO DISTILLED WATER, USE AS NEEDED (USUALLY 3X/WEEK))
     Dates: start: 20220203
  12. BUDESONIDE [Concomitant]
     Active Substance: BUDESONIDE
     Indication: Ageusia
  13. BUDESONIDE [Concomitant]
     Active Substance: BUDESONIDE
     Indication: Anosmia
  14. FLEXERIL [Concomitant]
     Active Substance: CYCLOBENZAPRINE HYDROCHLORIDE
     Indication: Pelvic floor dysfunction
     Dosage: TAKE 0.5 TO 1 TABLET EVERY NIGHT
  15. AMBIEN [Concomitant]
     Active Substance: ZOLPIDEM TARTRATE
     Indication: Sleep disorder
     Dosage: AS NEEDED (TAKE 0.5 OR 1 TABLET PRN)
  16. BENTYL [Concomitant]
     Active Substance: DICYCLOMINE HYDROCHLORIDE
     Indication: Pain
     Dosage: 20 MG, AS NEEDED (ONE TABLET EVERY 8 HOURS PRN)
  17. BENTYL [Concomitant]
     Active Substance: DICYCLOMINE HYDROCHLORIDE
     Indication: Bile duct stenosis
  18. PROCTOZONE HC [Concomitant]
     Active Substance: HYDROCORTISONE
     Indication: Haemorrhoids
     Dosage: AS NEEDED
  19. GLYDO [Concomitant]
     Active Substance: LIDOCAINE HYDROCHLORIDE ANHYDROUS
     Indication: Vulvovaginal pain
     Dosage: AS NEEDED (APPLY 3 X DAILY TO VULVA)
     Route: 067
  20. ERYTHROMYCIN [Concomitant]
     Active Substance: ERYTHROMYCIN
     Indication: Blepharitis
     Dosage: AS NEEDED (APPLY 1 THIN LAYER BOTH EYES AT NIGHT AS NEEDED) (OPHTHALMIC OINTMENT)
     Route: 047
  21. PEPCID AC [Concomitant]
     Active Substance: FAMOTIDINE
     Indication: Dyspepsia
     Dosage: 20 MG, AS NEEDED (TAKE ONE TABLET AS NEEDED FOR HEARTBURN)

REACTIONS (3)
  - Fatigue [Recovered/Resolved]
  - Condition aggravated [Recovered/Resolved]
  - Recalled product administered [Unknown]

NARRATIVE: CASE EVENT DATE: 20250501
